FAERS Safety Report 9877803 (Version 1)
Quarter: 2014Q1

REPORT INFORMATION
  Report Type: Spontaneous
  Country: US (occurrence: US)
  Receive Date: 20140206
  Receipt Date: 20140206
  Transmission Date: 20141002
  Serious: Yes (Other)
  Sender: FDA-Public Use
  Company Number: US-SA-2014SA014138

PATIENT
  Age: 17 Year
  Sex: Female

DRUGS (2)
  1. ALLEGRA [Suspect]
     Indication: MULTIPLE ALLERGIES
     Route: 048
  2. BENADRYL [Suspect]
     Route: 065

REACTIONS (2)
  - Nasal cyst [Recovered/Resolved]
  - Urticaria [Not Recovered/Not Resolved]
